FAERS Safety Report 4406302-7 (Version None)
Quarter: 2004Q3

REPORT INFORMATION
  Report Type: 
  Country: None (occurrence: None)
  Receive Date: 20040723
  Receipt Date: 20030616
  Transmission Date: 20050211
  Serious: No
  Sender: FDA-Public Use
  Company Number: US-GLAXOSMITHKLINE-A0412445A

PATIENT
  Age: 51 Year
  Sex: Female

DRUGS (7)
  1. AVANDIA [Suspect]
     Dosage: 4MG PER DAY
     Route: 048
     Dates: start: 20030501, end: 20030520
  2. GLUCOPHAGE XR [Concomitant]
     Dosage: 500MG PER DAY
     Route: 048
  3. LANTUS [Concomitant]
     Dosage: 130UNIT PER DAY
  4. AMARYL [Concomitant]
     Route: 048
  5. ATACAND [Concomitant]
  6. SPIRONOLACTONE [Concomitant]
     Dosage: 50MG TWICE PER DAY
     Route: 048
  7. FUROSEMIDE [Concomitant]
     Dosage: 40MG TWICE PER DAY
     Route: 048

REACTIONS (2)
  - ARTHRALGIA [None]
  - JOINT SWELLING [None]
